FAERS Safety Report 4471903-7 (Version None)
Quarter: 2004Q4

REPORT INFORMATION
  Report Type: 
  Country: None (occurrence: None)
  Receive Date: 20041006
  Receipt Date: 20040923
  Transmission Date: 20050328
  Serious: Yes (Hospitalization, Other)
  Sender: FDA-Public Use
  Company Number: 199678

PATIENT
  Age: 44 Year
  Sex: Female

DRUGS (7)
  1. AVONEX [Suspect]
     Indication: MULTIPLE SCLEROSIS
     Dates: end: 20030801
  2. AVONEX [Suspect]
     Indication: MULTIPLE SCLEROSIS
     Dosage: 30 MCG QW IM
     Route: 030
     Dates: start: 20040625
  3. LEXAPRO [Concomitant]
  4. CELEBREX [Concomitant]
  5. AMBIEN [Concomitant]
  6. MULTI-VITAMINS [Concomitant]
  7. VITAMIN E [Concomitant]

REACTIONS (3)
  - BREAST CANCER FEMALE [None]
  - POST PROCEDURAL COMPLICATION [None]
  - WEIGHT INCREASED [None]
